FAERS Safety Report 24728701 (Version 1)
Quarter: 2024Q4

REPORT INFORMATION
  Report Type: Spontaneous
  Country: HK (occurrence: HK)
  Receive Date: 20241212
  Receipt Date: 20241212
  Transmission Date: 20250114
  Serious: Yes (Other)
  Sender: ALEXION PHARMACEUTICALS
  Company Number: HK-AstraZeneca-CH-00762721A

PATIENT

DRUGS (4)
  1. ANIFROLUMAB [Suspect]
     Active Substance: ANIFROLUMAB
     Indication: Systemic lupus erythematosus
     Dosage: UNK
  2. ANIFROLUMAB [Suspect]
     Active Substance: ANIFROLUMAB
     Dosage: UNK
     Route: 042
  3. ANIFROLUMAB [Suspect]
     Active Substance: ANIFROLUMAB
     Dosage: UNK
  4. ANIFROLUMAB [Suspect]
     Active Substance: ANIFROLUMAB
     Dosage: UNK
     Route: 042

REACTIONS (1)
  - Pemphigoid [Not Recovered/Not Resolved]
